FAERS Safety Report 5719920-0 (Version None)
Quarter: 2008Q2

REPORT INFORMATION
  Report Type: 
  Country: None (occurrence: None)
  Receive Date: 20080425
  Receipt Date: 20080425
  Transmission Date: 20081010
  Serious: Yes (Hospitalization)
  Sender: FDA-Public Use
  Company Number: None

PATIENT
  Age: 58 Year
  Sex: Female

DRUGS (12)
  1. CETUXIMAB [Suspect]
     Indication: NON-SMALL CELL LUNG CANCER
     Dosage: 400 MG/M2
     Dates: start: 20080228
  2. CETUXIMAB [Suspect]
     Indication: NON-SMALL CELL LUNG CANCER
     Dosage: 250 MG/M2
     Dates: start: 20080306
  3. ATACAND [Concomitant]
  4. PROMETRIUM [Concomitant]
  5. PREMARIN [Concomitant]
  6. FLOVENT [Concomitant]
  7. FORADIL INHALER [Concomitant]
  8. SPIRIVA [Concomitant]
  9. COMBIVENT [Concomitant]
  10. METAMUCIL [Concomitant]
  11. ASPIRIN [Concomitant]
  12. TYLENOL [Concomitant]

REACTIONS (1)
  - COUGH [None]
